FAERS Safety Report 19745326 (Version 1)
Quarter: 2021Q3

REPORT INFORMATION
  Report Type: Report from Study
  Country: US (occurrence: US)
  Receive Date: 20210825
  Receipt Date: 20210825
  Transmission Date: 20211014
  Serious: No
  Sender: FDA-Public Use
  Company Number: NVSC2021US189262

PATIENT
  Sex: Female

DRUGS (2)
  1. ENTRESTO [Suspect]
     Active Substance: SACUBITRIL\VALSARTAN
     Indication: PULMONARY HYPERTENSION
  2. ENTRESTO [Suspect]
     Active Substance: SACUBITRIL\VALSARTAN
     Indication: CHRONIC LEFT VENTRICULAR FAILURE
     Dosage: 24/26MG
     Route: 048

REACTIONS (1)
  - Hypotension [Unknown]
